FAERS Safety Report 9353500 (Version 2)
Quarter: 2013Q4

REPORT INFORMATION
  Report Type: Spontaneous
  Country: GB (occurrence: GB)
  Receive Date: 20130618
  Receipt Date: 20131108
  Transmission Date: 20140711
  Serious: No
  Sender: FDA-Public Use
  Company Number: GB-ELI_LILLY_AND_COMPANY-GB201306004360

PATIENT
  Sex: Female
  Weight: 62 kg

DRUGS (3)
  1. ALIMTA [Suspect]
     Indication: NON-SMALL CELL LUNG CANCER
     Dosage: 700 MG, EVERY 21 DAYS
     Route: 042
     Dates: start: 201208
  2. FOLIC ACID [Concomitant]
     Indication: PREMEDICATION
  3. VITAMIN B12                        /00056201/ [Concomitant]
     Indication: PREMEDICATION

REACTIONS (4)
  - Tinea pedis [Not Recovered/Not Resolved]
  - Cellulitis [Unknown]
  - Pustular psoriasis [Unknown]
  - Urticaria papular [Recovering/Resolving]
